FAERS Safety Report 13740279 (Version 2)
Quarter: 2017Q3

REPORT INFORMATION
  Report Type: Report from Study
  Country: CA (occurrence: CA)
  Receive Date: 20170711
  Receipt Date: 20170816
  Transmission Date: 20171127
  Serious: Yes (Other)
  Sender: FDA-Public Use
  Company Number: CA-AMGEN-CANSP2013060200

PATIENT
  Age: 38 Year
  Sex: Female
  Weight: 51.25 kg

DRUGS (3)
  1. CYCLOBENZAPRINE. [Concomitant]
     Active Substance: CYCLOBENZAPRINE
  2. PROLIA [Suspect]
     Active Substance: DENOSUMAB
     Indication: OSTEOPOROSIS POSTMENOPAUSAL
     Dosage: UNK
     Route: 065
     Dates: start: 20120717
  3. ANAPROX [Concomitant]
     Active Substance: NAPROXEN SODIUM

REACTIONS (4)
  - Musculoskeletal disorder [Not Recovered/Not Resolved]
  - Joint range of motion decreased [Unknown]
  - Pain in extremity [Not Recovered/Not Resolved]
  - Nodule [Recovering/Resolving]

NARRATIVE: CASE EVENT DATE: 201401
